FAERS Safety Report 19132809 (Version 1)
Quarter: 2021Q2

REPORT INFORMATION
  Report Type: Spontaneous
  Country: CA (occurrence: CA)
  Receive Date: 20210413
  Receipt Date: 20210413
  Transmission Date: 20210717
  Serious: Yes (Other)
  Sender: FDA-Public Use
  Company Number: CA-PFIZER INC-2021399921

PATIENT
  Age: 73 Year
  Sex: Male

DRUGS (2)
  1. MIDAZOLAM. [Suspect]
     Active Substance: MIDAZOLAM
     Indication: ENDOSCOPY UPPER GASTROINTESTINAL TRACT
     Dosage: 5 MG, SINGLE
     Route: 040
  2. FENTANYL. [Suspect]
     Active Substance: FENTANYL
     Dosage: 100 UG, SINGLE
     Route: 041

REACTIONS (2)
  - Hyporesponsive to stimuli [Recovered/Resolved]
  - Blood pressure decreased [Recovered/Resolved]
